FAERS Safety Report 9698188 (Version 1)
Quarter: 2013Q4

REPORT INFORMATION
  Report Type: Spontaneous
  Country: US (occurrence: None)
  Receive Date: 20131113
  Receipt Date: 20131113
  Transmission Date: 20140711
  Serious: Yes (Hospitalization)
  Sender: FDA-Public Use
  Company Number: US-IGSA-IG1551

PATIENT
  Age: 42 Year
  Sex: Male

DRUGS (1)
  1. FLEBOGAMMA [Suspect]
     Indication: IMMUNODEFICIENCY COMMON VARIABLE
     Dosage: 5 GM; IV
     Route: 042
     Dates: start: 20131025

REACTIONS (3)
  - Thrombocytopenia [None]
  - Petechiae [None]
  - Haematuria [None]
